FAERS Safety Report 4694336-7 (Version None)
Quarter: 2005Q2

REPORT INFORMATION
  Report Type: 
  Country: None (occurrence: None)
  Receive Date: 20050620
  Receipt Date: 20050601
  Transmission Date: 20051028
  Serious: Yes (Other)
  Sender: FDA-Public Use
  Company Number: US-AMGEN-US136686

PATIENT
  Sex: Female

DRUGS (1)
  1. ENBREL [Suspect]
     Indication: RHEUMATOID ARTHRITIS
     Dates: start: 19990101, end: 20030501

REACTIONS (7)
  - CHEST PAIN [None]
  - DIABETES MELLITUS [None]
  - FIBROMYALGIA [None]
  - NON-HODGKIN'S LYMPHOMA [None]
  - RESPIRATORY DISORDER [None]
  - VENOUS STASIS [None]
  - VOCAL CORD PARALYSIS [None]
